FAERS Safety Report 4914937-8 (Version None)
Quarter: 2006Q1

REPORT INFORMATION
  Report Type: 
  Country: None (occurrence: None)
  Receive Date: 20060217
  Receipt Date: 20050706
  Transmission Date: 20060701
  Serious: Yes (Other)
  Sender: FDA-Public Use
  Company Number: PHEH2005US07533

PATIENT
  Age: 79 Year
  Sex: Female
  Weight: 44.444 kg

DRUGS (1)
  1. PAMIDRONATE DISODIUM [Suspect]
     Indication: MULTIPLE MYELOMA
     Dosage: 90 MG, QMO
     Route: 042
     Dates: start: 20031113, end: 20050623

REACTIONS (8)
  - BONE DISORDER [None]
  - ERYTHEMA [None]
  - IMPAIRED HEALING [None]
  - LOCAL SWELLING [None]
  - OSTEONECROSIS [None]
  - PAIN IN JAW [None]
  - TOOTH DISORDER [None]
  - TOOTH EXTRACTION [None]
